FAERS Safety Report 4975504-3 (Version None)
Quarter: 2006Q2

REPORT INFORMATION
  Report Type: 
  Country: None (occurrence: None)
  Receive Date: 20060417
  Receipt Date: 20060417
  Transmission Date: 20061013
  Serious: Yes (Other)
  Sender: FDA-Public Use
  Company Number: None

PATIENT
  Sex: Male
  Weight: 99.7913 kg

DRUGS (2)
  1. PREDNISONE TAB [Suspect]
     Indication: SARCOIDOSIS
     Dates: start: 20010101, end: 20010101
  2. PREDNISONE TAB [Suspect]
     Indication: SARCOIDOSIS
     Dates: start: 20001002, end: 20011201

REACTIONS (5)
  - GASTROOESOPHAGEAL REFLUX DISEASE [None]
  - ORAL INFECTION [None]
  - PAIN [None]
  - PRESCRIBED OVERDOSE [None]
  - TOOTH FRACTURE [None]
